FAERS Safety Report 6797350-0 (Version None)
Quarter: 2010Q2

REPORT INFORMATION
  Report Type: 
  Country: None (occurrence: None)
  Receive Date: 20100628
  Receipt Date: 20100628
  Transmission Date: 20101027
  Serious: Yes (Other)
  Sender: FDA-Public Use
  Company Number: None

PATIENT
  Sex: Female
  Weight: 10.9 kg

DRUGS (2)
  1. CONCENTRATED TYLENOL INFANT DROPS [Suspect]
     Indication: PAIN
     Dosage: 0.8ML AS NEEDED ORALLY
     Route: 048
     Dates: start: 20100401
  2. CONCENTRATED TYLENOL INFANT DROPS [Suspect]
     Indication: PAIN
     Dosage: 80MG PER 0.8ML
     Dates: start: 20100401

REACTIONS (7)
  - CONVULSION [None]
  - DECREASED APPETITE [None]
  - DISSOCIATION [None]
  - FATIGUE [None]
  - MIGRAINE [None]
  - PRODUCT QUALITY ISSUE [None]
  - STARING [None]
